FAERS Safety Report 9218173 (Version 1)
Quarter: 2013Q2

REPORT INFORMATION
  Report Type: Spontaneous
  Country: CH (occurrence: CH)
  Receive Date: 20130408
  Receipt Date: 20130408
  Transmission Date: 20140414
  Serious: Yes (Other)
  Sender: FDA-Public Use
  Company Number: PHHY2013CH033029

PATIENT
  Age: 61 Year
  Sex: Female

DRUGS (5)
  1. RIBAVIRIN [Suspect]
  2. RIBAVIRIN [Suspect]
     Dosage: 600 MG, DAILY
  3. PEGINTERFERON [Suspect]
  4. PEGINTERFERON [Suspect]
     Dosage: 135 G, PER WEEK
  5. TELAPREVIR [Suspect]
     Dates: start: 201201

REACTIONS (11)
  - Panniculitis [Recovered/Resolved]
  - Skin mass [Recovered/Resolved]
  - Erythema [Recovered/Resolved]
  - Pancreatic disorder [Recovered/Resolved]
  - Pancreatitis acute [Unknown]
  - Abdominal discomfort [Unknown]
  - Nausea [Unknown]
  - Vomiting [Unknown]
  - Diarrhoea [Unknown]
  - Haemolytic anaemia [Unknown]
  - Fatigue [Unknown]
